FAERS Safety Report 6711652-5 (Version None)
Quarter: 2010Q2

REPORT INFORMATION
  Report Type: 
  Country: None (occurrence: None)
  Receive Date: 20100505
  Receipt Date: 20100429
  Transmission Date: 20101027
  Serious: Yes (Hospitalization, Other)
  Sender: FDA-Public Use
  Company Number: IE-MEDIMMUNE-MEDI-0010785

PATIENT
  Sex: Male

DRUGS (2)
  1. SYNAGIS [Suspect]
     Indication: RESPIRATORY SYNCYTIAL VIRUS INFECTION
     Route: 030
     Dates: start: 20091209, end: 20091209
  2. SYNAGIS [Suspect]
     Route: 030
     Dates: end: 20100309

REACTIONS (4)
  - BRONCHIOLITIS [None]
  - CONSTIPATION [None]
  - HYPOPHAGIA [None]
  - NASOPHARYNGITIS [None]
